FAERS Safety Report 9664773 (Version 1)
Quarter: 2013Q4

REPORT INFORMATION
  Report Type: Spontaneous
  Country: US (occurrence: US)
  Receive Date: 20131101
  Receipt Date: 20131101
  Transmission Date: 20140711
  Serious: Yes (Other)
  Sender: FDA-Public Use
  Company Number: US-BAYER-2013-131468

PATIENT
  Age: 72 Year
  Sex: Male

DRUGS (1)
  1. XOFIGO [Suspect]

REACTIONS (7)
  - Metastases to spine [None]
  - Metastases to bone [None]
  - Fatigue [None]
  - Pain [None]
  - Proctalgia [None]
  - Pain in extremity [None]
  - Swelling [None]
